FAERS Safety Report 9452752 (Version 1)
Quarter: 2013Q3

REPORT INFORMATION
  Report Type: Spontaneous
  Country: US (occurrence: US)
  Receive Date: 20130812
  Receipt Date: 20130812
  Transmission Date: 20140515
  Serious: Yes (Death, Other)
  Sender: FDA-Public Use
  Company Number: PHHY2013US085255

PATIENT
  Age: 55 Year
  Sex: Male

DRUGS (4)
  1. SANDOSTATIN [Suspect]
     Indication: NEUROENDOCRINE TUMOUR
     Dosage: UNK UKN, UNK
  2. NEXAVAR [Concomitant]
     Dosage: UNK UKN, UNK
  3. XELODA [Concomitant]
     Dosage: UNK UKN, UNK
  4. TEMODAR [Concomitant]
     Dosage: UNK UKN, UNK

REACTIONS (4)
  - Death [Fatal]
  - Sclerosing encapsulating peritonitis [Not Recovered/Not Resolved]
  - Intestinal obstruction [Not Recovered/Not Resolved]
  - Drug intolerance [Unknown]
